FAERS Safety Report 23241592 (Version 1)
Quarter: 2023Q4

REPORT INFORMATION
  Report Type: Spontaneous
  Country: FR (occurrence: FR)
  Receive Date: 20231129
  Receipt Date: 20231129
  Transmission Date: 20240110
  Serious: Yes (Death, Hospitalization)
  Sender: FDA-Public Use
  Company Number: None

PATIENT
  Age: 76 Year
  Sex: Male
  Weight: 112 kg

DRUGS (2)
  1. LYRICA [Suspect]
     Active Substance: PREGABALIN
     Indication: Product used for unknown indication
     Dosage: 300 MILLIGRAM 1 TOTAL
     Route: 048
     Dates: start: 20230928, end: 20230928
  2. MYSOLINE [Suspect]
     Active Substance: PRIMIDONE
     Indication: Product used for unknown indication
     Dosage: 2250 MILLIGRAM, 1 TOTAL
     Route: 048
     Dates: start: 20230928, end: 20230928

REACTIONS (4)
  - Poisoning deliberate [Fatal]
  - Pneumonia aspiration [Fatal]
  - Altered state of consciousness [Not Recovered/Not Resolved]
  - Intentional overdose [Unknown]

NARRATIVE: CASE EVENT DATE: 20230928
